FAERS Safety Report 21219105 (Version 4)
Quarter: 2022Q4

REPORT INFORMATION
  Report Type: Report from Study
  Country: US (occurrence: US)
  Receive Date: 20220816
  Receipt Date: 20221101
  Transmission Date: 20230112
  Serious: Yes (Other)
  Sender: FDA-Public Use
  Company Number: US-ABBVIE-22K-163-4485490-00

PATIENT
  Sex: Female

DRUGS (6)
  1. IMBRUVICA [Suspect]
     Active Substance: IBRUTINIB
     Indication: Chronic lymphocytic leukaemia
     Route: 048
  2. IMBRUVICA [Suspect]
     Active Substance: IBRUTINIB
     Indication: Chronic lymphocytic leukaemia
     Route: 048
  3. IMBRUVICA [Suspect]
     Active Substance: IBRUTINIB
     Indication: Chronic lymphocytic leukaemia
     Route: 048
  4. MAGNESIUM [Concomitant]
     Active Substance: MAGNESIUM
     Indication: Product used for unknown indication
  5. COVID-19 vaccine [Concomitant]
     Indication: COVID-19 immunisation
     Dosage: FIRST DOSE?ONE IN ONCE
     Route: 030
  6. COVID-19 vaccine [Concomitant]
     Indication: COVID-19 immunisation
     Dosage: BOOSTER DOSE
     Route: 030

REACTIONS (23)
  - Urinary bladder haemorrhage [Unknown]
  - Insomnia [Unknown]
  - Urinary tract infection [Unknown]
  - Petechiae [Unknown]
  - Contusion [Unknown]
  - COVID-19 [Unknown]
  - COVID-19 [Not Recovered/Not Resolved]
  - White blood cell count decreased [Unknown]
  - Scab [Unknown]
  - Magnesium deficiency [Unknown]
  - White blood cell count increased [Unknown]
  - Lymphadenopathy [Recovering/Resolving]
  - Neck mass [Recovered/Resolved]
  - Diarrhoea [Unknown]
  - Fatigue [Unknown]
  - Muscle spasms [Unknown]
  - Off label use [Unknown]
  - Vaccine induced antibody absent [Unknown]
  - Decreased activity [Unknown]
  - Pollakiuria [Unknown]
  - Red blood cell count decreased [Unknown]
  - COVID-19 [Not Recovered/Not Resolved]
  - Adverse food reaction [Unknown]
